FAERS Safety Report 7363201-9 (Version None)
Quarter: 2011Q1

REPORT INFORMATION
  Report Type: 
  Country: None (occurrence: None)
  Receive Date: 20110309
  Receipt Date: 20110222
  Transmission Date: 20110831
  Serious: Yes (Hospitalization)
  Sender: FDA-Public Use
  Company Number: AUR-APL-2011-00669

PATIENT
  Age: 67 Year
  Sex: Male
  Weight: 83 kg

DRUGS (7)
  1. FUROSEMIDE [Suspect]
  2. AMLODIPINE [Suspect]
  3. ASPIRIN [Concomitant]
  4. LISINOPRIL [Suspect]
  5. DEXAMETHASONE SODIUM PHOSPHATE [Suspect]
     Indication: MULTIPLE MYELOMA
     Dosage: 20MG-CYCLIC ON DAYS 1,2,4,5,8,9,11 AND 12-ORAL
     Route: 048
     Dates: start: 20110117, end: 20110128
  6. VELCADE [Suspect]
     Indication: MULTIPLE MYELOMA
     Dosage: 1.3MG/M2-DAYS 1,4,8 AND 11-IV BOLUS
     Route: 040
     Dates: start: 20110117, end: 20110127
  7. LENALIDOMIDE [Suspect]
     Indication: MULTIPLE MYELOMA
     Dosage: 25MG-CYCLIC ON DAYS 1-14,ORAL
     Route: 048
     Dates: start: 20110117, end: 20110130

REACTIONS (6)
  - BLOOD CREATININE INCREASED [None]
  - LOSS OF CONSCIOUSNESS [None]
  - DEHYDRATION [None]
  - BLOOD UREA INCREASED [None]
  - SYNCOPE [None]
  - ORTHOSTATIC HYPOTENSION [None]
